FAERS Safety Report 14099782 (Version 2)
Quarter: 2017Q4

REPORT INFORMATION
  Report Type: Report from Study
  Country: CA (occurrence: CA)
  Receive Date: 20171017
  Receipt Date: 20171211
  Transmission Date: 20180321
  Serious: Yes (Hospitalization)
  Sender: FDA-Public Use
  Company Number: CA-JNJFOC-20171014812

PATIENT
  Age: 35 Year
  Sex: Male
  Weight: 57.15 kg

DRUGS (1)
  1. STELARA [Suspect]
     Active Substance: USTEKINUMAB
     Indication: CROHN^S DISEASE
     Route: 058

REACTIONS (2)
  - Infection [Not Recovered/Not Resolved]
  - Rash generalised [Unknown]

NARRATIVE: CASE EVENT DATE: 20161230
